FAERS Safety Report 4816139-2 (Version None)
Quarter: 2005Q4

REPORT INFORMATION
  Report Type: 
  Country: None (occurrence: None)
  Receive Date: 20051026
  Receipt Date: 20051010
  Transmission Date: 20060501
  Serious: Yes (Hospitalization)
  Sender: FDA-Public Use
  Company Number: USA0508104666

PATIENT
  Age: 83 Year
  Sex: Female

DRUGS (9)
  1. FORTEO [Suspect]
     Indication: OSTEOPOROSIS
     Dosage: 20 UG DAY
     Dates: start: 20050207
  2. FOSAMAX [Concomitant]
  3. LASIX [Concomitant]
  4. CALCIUM GLUCONATE [Concomitant]
  5. KCL (POTASSIUM CHLORIDE) [Concomitant]
  6. COZAAR [Concomitant]
  7. NITROGLYCERIN [Concomitant]
  8. MIRAPEX [Concomitant]
  9. NORVASC [Concomitant]

REACTIONS (6)
  - CHEST PAIN [None]
  - COUGH [None]
  - PAIN [None]
  - PHARMACEUTICAL PRODUCT COMPLAINT [None]
  - RIB FRACTURE [None]
  - SPINAL COMPRESSION FRACTURE [None]
